FAERS Safety Report 12909588 (Version 3)
Quarter: 2016Q4

REPORT INFORMATION
  Report Type: Spontaneous
  Country: PT (occurrence: PT)
  Receive Date: 20161104
  Receipt Date: 20161201
  Transmission Date: 20170207
  Serious: Yes (Life-Threatening)
  Sender: FDA-Public Use
  Company Number: PT-ROCHE-1848804

PATIENT
  Sex: Female
  Weight: 88 kg

DRUGS (8)
  1. VARFINE [Suspect]
     Active Substance: WARFARIN SODIUM
     Indication: PRODUCT USED FOR UNKNOWN INDICATION
     Route: 065
  2. PERJETA [Suspect]
     Active Substance: PERTUZUMAB
     Dosage: REINTRODUCED ON AN UNKNOWN DATE
     Route: 042
  3. HERCEPTIN [Suspect]
     Active Substance: TRASTUZUMAB
     Indication: HER-2 POSITIVE BREAST CANCER
     Dosage: LAST DOSE RECEIVED ON 28/OCT/2016
     Route: 058
     Dates: start: 20160826, end: 20161028
  4. HERCEPTIN [Suspect]
     Active Substance: TRASTUZUMAB
     Dosage: REINTRODUCED ON AN UNKNOWN DATE
     Route: 058
  5. PERJETA [Suspect]
     Active Substance: PERTUZUMAB
     Indication: HER-2 POSITIVE BREAST CANCER
     Dosage: LAST DOSE RECEIVED ON 28/OCT/2016
     Route: 042
     Dates: start: 20160826, end: 20161028
  6. TAXOTERE [Suspect]
     Active Substance: DOCETAXEL
     Indication: PRODUCT USED FOR UNKNOWN INDICATION
     Route: 065
  7. CIPROFLOXACIN. [Suspect]
     Active Substance: CIPROFLOXACIN
     Indication: PRODUCT USED FOR UNKNOWN INDICATION
     Route: 065
  8. FILGRASTIM [Concomitant]
     Active Substance: FILGRASTIM
     Route: 065

REACTIONS (1)
  - Glomerulonephritis [Recovered/Resolved]

NARRATIVE: CASE EVENT DATE: 201610
